FAERS Safety Report 24289456 (Version 2)
Quarter: 2024Q3

REPORT INFORMATION
  Report Type: Other
  Country: GB (occurrence: GB)
  Receive Date: 20240906
  Receipt Date: 20240921
  Transmission Date: 20241017
  Serious: Yes (Disabling, Other)
  Sender: GLENMARK
  Company Number: None

PATIENT

DRUGS (2)
  1. MONTELUKAST SODIUM [Suspect]
     Active Substance: MONTELUKAST\MONTELUKAST SODIUM
     Indication: Asthma
     Dosage: UNK UNK, OD, 1 SACHET PER NIGHT
     Route: 065
     Dates: start: 20240805, end: 20240812
  2. BECLOMETHASONE DIPROPIONATE [Concomitant]
     Active Substance: BECLOMETHASONE DIPROPIONATE
     Indication: Asthma
     Dosage: UNK
     Route: 065
     Dates: start: 202408

REACTIONS (7)
  - Sleep terror [Recovered/Resolved]
  - Paranoia [Recovered/Resolved]
  - Personality change [Recovered/Resolved]
  - Anxiety [Recovered/Resolved]
  - Emotional distress [Unknown]
  - Ill-defined disorder [Unknown]
  - Violence-related symptom [Unknown]
